FAERS Safety Report 7373773-6 (Version None)
Quarter: 2011Q1

REPORT INFORMATION
  Report Type: 
  Country: None (occurrence: None)
  Receive Date: 20110315
  Receipt Date: 20110303
  Transmission Date: 20110831
  Serious: Yes (Other)
  Sender: FDA-Public Use
  Company Number: 2011SP009913

PATIENT
  Sex: Male

DRUGS (2)
  1. AERIUS (DESLORATADINE /01398501/) [Suspect]
     Indication: HYPERSENSITIVITY
     Dosage: 5 MG;QD
     Dates: start: 20110117, end: 20110124
  2. TERBUTALINE / BRICANYL TURBUHALER [Concomitant]

REACTIONS (9)
  - FATIGUE [None]
  - FEELING ABNORMAL [None]
  - CHILLS [None]
  - PRESYNCOPE [None]
  - VOMITING [None]
  - MUSCLE TWITCHING [None]
  - SYNCOPE [None]
  - RESTLESSNESS [None]
  - ABDOMINAL PAIN UPPER [None]
